FAERS Safety Report 9586301 (Version 1)
Quarter: 2013Q4

REPORT INFORMATION
  Report Type: Spontaneous
  Country: GB (occurrence: GB)
  Receive Date: 20131003
  Receipt Date: 20131003
  Transmission Date: 20140711
  Serious: Yes (Life-Threatening, Hospitalization, Disabling)
  Sender: FDA-Public Use
  Company Number: GB-JNJFOC-20130917837

PATIENT
  Age: 74 Year
  Sex: Male
  Weight: 83 kg

DRUGS (7)
  1. XARELTO [Suspect]
     Indication: CEREBROVASCULAR ACCIDENT PROPHYLAXIS
     Route: 048
     Dates: start: 20130524, end: 20130816
  2. XARELTO [Suspect]
     Indication: ATRIAL FIBRILLATION
     Route: 048
     Dates: start: 20130524, end: 20130816
  3. ROSUVASTATIN [Concomitant]
     Indication: CEREBROVASCULAR ACCIDENT
     Route: 065
     Dates: start: 2009
  4. LISINOPRIL [Concomitant]
     Indication: HYPERTENSION
     Route: 065
     Dates: start: 2002
  5. OMEPRAZOLE [Concomitant]
     Indication: DYSPEPSIA
     Route: 065
     Dates: start: 20010809
  6. BISOPROLOL [Concomitant]
     Indication: ATRIAL FIBRILLATION
     Route: 065
     Dates: start: 2001
  7. DOXAZOSIN [Concomitant]
     Indication: HYPERTENSION
     Route: 065
     Dates: start: 2001

REACTIONS (2)
  - Cerebrovascular accident [Recovering/Resolving]
  - Withdrawal syndrome [Unknown]
